FAERS Safety Report 10619894 (Version 1)
Quarter: 2014Q4

REPORT INFORMATION
  Report Type: Spontaneous
  Country: US (occurrence: None)
  Receive Date: 20141126
  Receipt Date: 20141126
  Transmission Date: 20150529
  Serious: Yes (Hospitalization)
  Sender: FDA-Public Use
  Company Number: COM-002712

PATIENT
  Age: 3 Year
  Sex: Female
  Weight: 18.14 kg

DRUGS (1)
  1. ACETAMINOPHEN FOR CHILDREN [Suspect]
     Active Substance: ACETAMINOPHEN
     Indication: ACCIDENTAL OVERDOSE
     Route: 048
     Dates: start: 20141115

REACTIONS (6)
  - Hepatic enzyme increased [None]
  - Vomiting [None]
  - Diarrhoea [None]
  - Accidental exposure to product by child [None]
  - Failure of child resistant mechanism for pharmaceutical product [None]
  - Liver injury [None]

NARRATIVE: CASE EVENT DATE: 20141115
